FAERS Safety Report 6390375-9 (Version None)
Quarter: 2009Q4

REPORT INFORMATION
  Report Type: 
  Country: None (occurrence: None)
  Receive Date: 20091006
  Receipt Date: 20090928
  Transmission Date: 20100525
  Serious: Yes (Other)
  Sender: FDA-Public Use
  Company Number: US-ROCHE-658808

PATIENT
  Age: 71 Year
  Sex: Female

DRUGS (4)
  1. CAPECITABINE [Suspect]
     Route: 065
  2. GEMCITABINE [Suspect]
     Dosage: FORM: INFUSION.
     Route: 042
  3. DOCETAXEL [Suspect]
     Dosage: FORM: INFUSION.
     Route: 042
  4. RAPAMYCIN [Suspect]
     Dosage: 14 MG NIGHT PRIOR TO INTRAVENOUS TREATMENT; 6 MG DAY AFTER TREATMENT WAS ADDED TO THE REGIMEN.
     Route: 048

REACTIONS (2)
  - LEUKOPENIA [None]
  - MALIGNANT NEOPLASM PROGRESSION [None]
